FAERS Safety Report 7491529-0 (Version None)
Quarter: 2011Q2

REPORT INFORMATION
  Report Type: 
  Country: None (occurrence: None)
  Receive Date: 20110519
  Receipt Date: 20110506
  Transmission Date: 20111010
  Serious: Yes (Other)
  Sender: FDA-Public Use
  Company Number: FR-ELI_LILLY_AND_COMPANY-FR201102005506

PATIENT

DRUGS (12)
  1. LITHIUM CARBONATE [Concomitant]
     Dosage: UNK
     Dates: start: 20110201
  2. SOLIAN [Concomitant]
     Indication: ANXIETY
     Dosage: 300 MG D
     Dates: start: 20110101
  3. SOLIAN [Concomitant]
     Dosage: 300 MG D
     Dates: start: 20110101
  4. LYSANXIA [Concomitant]
     Dosage: 10 MG, UNK
     Route: 064
     Dates: end: 20101210
  5. PROPRANOLOL [Concomitant]
     Dosage: 40 MG, DAILY (1/D)
     Route: 064
     Dates: end: 20101210
  6. CYMBALTA [Suspect]
     Indication: DEPRESSION
     Dosage: 60 MG, QD
     Route: 064
     Dates: end: 20101210
  7. CYMBALTA [Suspect]
     Dosage: 60 MG, QD
     Route: 064
     Dates: end: 20101210
  8. LITHIUM CARBONATE [Concomitant]
     Indication: AFFECTIVE DISORDER
     Dosage: UNK
     Dates: start: 20110201
  9. LYSANXIA [Concomitant]
     Dosage: 10 MG, UNK
     Route: 064
     Dates: end: 20101210
  10. CLONAZEPAM [Concomitant]
     Route: 064
  11. CLONAZEPAM [Concomitant]
     Route: 064
  12. PROPRANOLOL [Concomitant]
     Indication: HEADACHE
     Dosage: 40 MG, DAILY (1/D)
     Route: 064
     Dates: end: 20101210

REACTIONS (9)
  - BRONCHIOLITIS [None]
  - INFANTILE COLIC [None]
  - IRRITABILITY [None]
  - DRUG EXPOSURE DURING PREGNANCY [None]
  - SLEEP DISORDER [None]
  - DRUG WITHDRAWAL SYNDROME [None]
  - HYPERTONIA NEONATAL [None]
  - CRYING [None]
  - TENSION [None]
